FAERS Safety Report 20934061 (Version 2)
Quarter: 2022Q2

REPORT INFORMATION
  Report Type: Spontaneous
  Country: JP (occurrence: JP)
  Receive Date: 20220608
  Receipt Date: 20220616
  Transmission Date: 20220721
  Serious: Yes (Hospitalization, Other)
  Sender: FDA-Public Use
  Company Number: JP-SA-2022SA205950

PATIENT
  Age: 56 Year
  Sex: Female

DRUGS (5)
  1. INSULIN ASPART [Suspect]
     Active Substance: INSULIN ASPART
     Indication: Type 2 diabetes mellitus
     Dosage: UNK
     Route: 065
  2. INSULIN GLARGINE [Suspect]
     Active Substance: INSULIN GLARGINE
     Indication: Type 2 diabetes mellitus
     Dosage: UNK
     Route: 065
  3. INSULIN HUMAN NOS [Suspect]
     Active Substance: INSULIN HUMAN
     Indication: Type 2 diabetes mellitus
     Dosage: UNK
     Route: 065
  4. INSULIN HUMAN NOS [Suspect]
     Active Substance: INSULIN HUMAN
     Indication: Diabetic ketoacidosis
     Dosage: 18 UNITS/H OF INSULIN INFUSION
     Route: 065
  5. INSULIN DEGLUDEC [Suspect]
     Active Substance: INSULIN DEGLUDEC
     Indication: Type 2 diabetes mellitus
     Dosage: UNK
     Route: 065

REACTIONS (5)
  - Diabetic ketoacidosis [Recovering/Resolving]
  - Fatigue [Recovering/Resolving]
  - Blood ketone body increased [Recovering/Resolving]
  - Drug hypersensitivity [Unknown]
  - Injection site erythema [Unknown]
